FAERS Safety Report 21527440 (Version 2)
Quarter: 2022Q4

REPORT INFORMATION
  Report Type: Other
  Country: DE (occurrence: None)
  Receive Date: 20221031
  Receipt Date: 20221129
  Transmission Date: 20230113
  Serious: Yes (Other)
  Sender: FDA-Public Use
  Company Number: DE-UCBSA-2022060730

PATIENT
  Age: 16 Year
  Sex: Female

DRUGS (4)
  1. RITUXIMAB [Suspect]
     Active Substance: RITUXIMAB
     Indication: Product used for unknown indication
     Dosage: UNK
     Route: 065
  2. METHYLPREDNISOLONE [Suspect]
     Active Substance: METHYLPREDNISOLONE
     Indication: Autoinflammatory disease
     Dosage: 1 GRAM/DAY
     Route: 065
  3. LEVETIRACETAM [Suspect]
     Active Substance: LEVETIRACETAM
     Indication: Seizure
     Route: 065
  4. LACOSAMIDE [Suspect]
     Active Substance: LACOSAMIDE
     Indication: Product used for unknown indication
     Route: 065

REACTIONS (8)
  - Seizure [Recovering/Resolving]
  - Diplopia [Recovering/Resolving]
  - Clonus [Unknown]
  - Lethargy [Recovering/Resolving]
  - Vertigo [Not Recovered/Not Resolved]
  - Disorientation [Unknown]
  - Disturbance in attention [Recovering/Resolving]
  - Headache [Recovering/Resolving]
